FAERS Safety Report 5120461-2 (Version None)
Quarter: 2006Q4

REPORT INFORMATION
  Report Type: 
  Country: None (occurrence: None)
  Receive Date: 20061002
  Receipt Date: 20060920
  Transmission Date: 20070319
  Serious: Yes (Other)
  Sender: FDA-Public Use
  Company Number: 2006SP002262

PATIENT
  Sex: Male

DRUGS (2)
  1. TEMODAL [Suspect]
     Indication: DRUG USE FOR UNKNOWN INDICATION
     Dates: end: 20060901
  2. RADIATION THERAPY (THERAPEUTIC RADIOPHARMACEUTICALS) [Suspect]
     Indication: DRUG USE FOR UNKNOWN INDICATION
     Dates: end: 20060901

REACTIONS (5)
  - CONSTIPATION [None]
  - DIABETES MELLITUS [None]
  - DYSGEUSIA [None]
  - HEARING IMPAIRED [None]
  - TREMOR [None]
